FAERS Safety Report 4456560-8 (Version None)
Quarter: 2004Q3

REPORT INFORMATION
  Report Type: 
  Country: None (occurrence: None)
  Receive Date: 20040921
  Receipt Date: 20040908
  Transmission Date: 20050211
  Serious: Yes (Death)
  Sender: FDA-Public Use
  Company Number: 2004063749

PATIENT
  Age: 21 Year
  Sex: Female

DRUGS (6)
  1. HYDROXYZINE HCL [Suspect]
     Indication: DEPRESSION
     Dosage: ORAL
     Route: 048
  2. CLOMIPRAMINE HCL [Suspect]
     Indication: DEPRESSION
     Dosage: ORAL
     Route: 048
  3. TIANEPTINE (TIANEPTINE) [Suspect]
     Indication: DEPRESSION
     Dosage: ORAL
     Route: 048
  4. ETHANOL (ETHANOL) [Suspect]
     Indication: ILL-DEFINED DISORDER
     Dosage: ORAL
     Route: 048
  5. ASPIRIN [Concomitant]
  6. ACETAMINOPHEN [Concomitant]

REACTIONS (6)
  - ALCOHOL INTERACTION [None]
  - DRUG INTERACTION [None]
  - DRUG TOXICITY [None]
  - HEPATIC STEATOSIS [None]
  - PULMONARY OEDEMA [None]
  - SUICIDE ATTEMPT [None]
